FAERS Safety Report 6574597 (Version 3)
Quarter: 2020Q3

REPORT INFORMATION
  Report Type: Report from Study
  Country: US (occurrence: US)
  Receive Date: 20080310
  Receipt Date: 20080404
  Transmission Date: 20201105
  Serious: Yes (Hospitalization)
  Sender: FDA-Public Use
  Company Number: US-JNJFOC-20080300517

PATIENT
  Age: 49 Year
  Sex: Female
  Weight: 80.29 kg

DRUGS (21)
  1. INTELENCE [Suspect]
     Active Substance: ETRAVIRINE
     Route: 048
  2. ZOLPIDEM [Concomitant]
     Active Substance: ZOLPIDEM TARTRATE
     Route: 048
  3. PREZISTA [Suspect]
     Active Substance: DARUNAVIR ETHANOLATE
     Route: 048
  4. TRUVADA [Suspect]
     Active Substance: EMTRICITABINE\TENOFOVIR DISOPROXIL FUMARATE
     Indication: HIV INFECTION
     Dosage: 200/300 MG
     Route: 048
  5. RITONAVIR. [Suspect]
     Active Substance: RITONAVIR
     Indication: HIV INFECTION
     Route: 048
  6. BUPROPION. [Concomitant]
     Active Substance: BUPROPION
     Route: 048
  7. CENTRUM [Concomitant]
     Active Substance: VITAMINS
     Route: 048
  8. TYLENOL [Concomitant]
     Active Substance: ACETAMINOPHEN
     Dosage: EVERY 6 HR OR AS NEEDED
     Route: 048
  9. ASPIRIN. [Concomitant]
     Active Substance: ASPIRIN
     Route: 048
  10. GABAPENTIN. [Concomitant]
     Active Substance: GABAPENTIN
     Route: 048
  11. PREZISTA [Suspect]
     Active Substance: DARUNAVIR ETHANOLATE
     Indication: HIV INFECTION
     Route: 048
  12. ALBUTEROL. [Concomitant]
     Active Substance: ALBUTEROL
     Dosage: 2?3 UNITS
     Route: 048
  13. ESOMEPRAZOLE. [Concomitant]
     Active Substance: ESOMEPRAZOLE MAGNESIUM
     Route: 048
  14. INTELENCE [Suspect]
     Active Substance: ETRAVIRINE
     Indication: HIV INFECTION
     Route: 048
  15. LISINOPRIL. [Concomitant]
     Active Substance: LISINOPRIL
     Route: 048
  16. PROZAC [Concomitant]
     Active Substance: FLUOXETINE HYDROCHLORIDE
     Route: 048
  17. DIDANOSINE. [Suspect]
     Active Substance: DIDANOSINE
     Indication: HIV INFECTION
     Route: 048
  18. ROSUVASTATIN. [Concomitant]
     Active Substance: ROSUVASTATIN
     Route: 048
  19. LASIX [Concomitant]
     Active Substance: FUROSEMIDE
     Route: 048
  20. ADVAIR HFA [Concomitant]
     Active Substance: FLUTICASONE PROPIONATE\SALMETEROL XINAFOATE
     Dosage: 250/50
     Route: 055
  21. HYDROCHLOROTHIAZIDE. [Concomitant]
     Active Substance: HYDROCHLOROTHIAZIDE
     Route: 048

REACTIONS (1)
  - Cardiac tamponade [Recovered/Resolved]

NARRATIVE: CASE EVENT DATE: 20080126
